FAERS Safety Report 20526441 (Version 1)
Quarter: 2022Q1

REPORT INFORMATION
  Report Type: Spontaneous
  Country: US (occurrence: None)
  Receive Date: 20220226
  Receipt Date: 20220226
  Transmission Date: 20220423
  Serious: Yes (Other)
  Sender: FDA-Public Use
  Company Number: None

PATIENT
  Age: 69 Year
  Sex: Female

DRUGS (8)
  1. PRISTIQ EXTENDED-RELEASE [Suspect]
     Active Substance: DESVENLAFAXINE SUCCINATE
     Indication: Depression
     Dosage: OTHER QUANTITY : 1 CAPSULE(S);?FREQUENCY : AT BEDTIME;?
     Route: 048
     Dates: start: 20150814, end: 20200214
  2. CYMBALTA [Suspect]
     Active Substance: DULOXETINE HYDROCHLORIDE
     Indication: Depression
     Dosage: OTHER QUANTITY : 1 CAPSULE(S);?FREQUENCY : AT BEDTIME;?
     Route: 048
     Dates: start: 20150214, end: 20190214
  3. LOSARTAN [Concomitant]
     Active Substance: LOSARTAN
  4. CALCIUM [Concomitant]
  5. CURCUMIN [Concomitant]
     Active Substance: CURCUMIN
  6. VITAMIN D NOS [Concomitant]
     Active Substance: VITAMIN D NOS
  7. MAGNESIUM [Concomitant]
  8. VIT B13 [Concomitant]

REACTIONS (12)
  - Withdrawal syndrome [None]
  - Nausea [None]
  - Myalgia [None]
  - Pain in extremity [None]
  - Dizziness [None]
  - Anxiety [None]
  - Nightmare [None]
  - Sleep disorder [None]
  - Nervousness [None]
  - Decreased appetite [None]
  - Dry mouth [None]
  - Fatigue [None]

NARRATIVE: CASE EVENT DATE: 20210214
